FAERS Safety Report 13822712 (Version 1)
Quarter: 2017Q3

REPORT INFORMATION
  Report Type: Spontaneous
  Country: US (occurrence: US)
  Receive Date: 20170801
  Receipt Date: 20170801
  Transmission Date: 20171127
  Serious: Yes (Hospitalization)
  Sender: FDA-Public Use
  Company Number: US-LUNDBECK-DKLU2034957

PATIENT
  Age: 69 Year
  Sex: Male

DRUGS (1)
  1. NORTHERA [Suspect]
     Active Substance: DROXIDOPA
     Indication: ORTHOSTATIC HYPOTENSION
     Dosage: TITRATION DOSING
     Route: 048
     Dates: end: 20170726

REACTIONS (7)
  - Hyperhidrosis [Unknown]
  - Chills [Unknown]
  - Atrial fibrillation [Unknown]
  - Drug dose omission [Unknown]
  - Pyrexia [Unknown]
  - Tachycardia [Unknown]
  - Oxygen saturation decreased [Unknown]

NARRATIVE: CASE EVENT DATE: 20170726
